FAERS Safety Report 6135638-7 (Version None)
Quarter: 2009Q1

REPORT INFORMATION
  Report Type: 
  Country: None (occurrence: None)
  Receive Date: 20090327
  Receipt Date: 20080925
  Transmission Date: 20090719
  Serious: No
  Sender: FDA-Public Use
  Company Number: US-ASTRAZENECA-2008UW20296

PATIENT
  Age: 65 Year
  Sex: Male

DRUGS (2)
  1. LISINOPRIL [Suspect]
     Route: 048
     Dates: start: 20070301
  2. LISINOPRIL [Suspect]
     Route: 048

REACTIONS (2)
  - DIZZINESS [None]
  - EMOTIONAL DISORDER [None]
